FAERS Safety Report 7518972-5 (Version None)
Quarter: 2011Q2

REPORT INFORMATION
  Report Type: 
  Country: None (occurrence: None)
  Receive Date: 20110512
  Receipt Date: 20110216
  Transmission Date: 20111010
  Serious: No
  Sender: FDA-Public Use
  Company Number: 1000018871

PATIENT
  Age: 46 Year
  Sex: Female

DRUGS (14)
  1. SAVELLA [Suspect]
     Indication: FIBROMYALGIA
     Dosage: SEE IMAGE, ORAL
     Route: 048
     Dates: start: 20091224, end: 20091227
  2. SAVELLA [Suspect]
     Indication: FIBROMYALGIA
     Dosage: SEE IMAGE, ORAL
     Route: 048
     Dates: start: 20091222, end: 20091223
  3. SAVELLA [Suspect]
     Indication: FIBROMYALGIA
     Dosage: SEE IMAGE, ORAL
     Route: 048
     Dates: start: 20091221, end: 20091221
  4. SAVELLA [Suspect]
     Indication: FIBROMYALGIA
     Dosage: SEE IMAGE, ORAL
     Route: 048
     Dates: start: 20091228, end: 20110117
  5. WELLBUTRIN SR (BUPROPION HYDROCHLORIDE SUSTAINED-RELEASE) (BUPROPION H [Concomitant]
  6. HYDROCODONE (HYDROCODONE) (HYDROCODONE) [Concomitant]
  7. KLONOPIN (CLONAZEPAM) (CLONAZEPAM) [Concomitant]
  8. CARAFATE (SUCRALFATE) (SUCRALFATE) [Concomitant]
  9. RANITIDINE [Concomitant]
  10. SAVELLA [Suspect]
     Indication: FIBROMYALGIA
     Dosage: 200 MG (100 MG, 2 IN 1 D), ORAL, 100 MG (50 MG, 2 IN 1 D), ORAL
     Route: 048
     Dates: start: 20110201
  11. SAVELLA [Suspect]
     Indication: FIBROMYALGIA
     Dosage: 200 MG (100 MG, 2 IN 1 D), ORAL, 100 MG (50 MG, 2 IN 1 D), ORAL
     Route: 048
     Dates: start: 20110118, end: 20110201
  12. B12 (CYANOCOBALAMIN-TANNIN COMPLEX) (CYANOCOBALAMIN-TANNIN COMPLEX) [Concomitant]
  13. IBUPROFEN [Concomitant]
  14. SEROQUEL (QUETIAPINE FUMARATE) (QUETIAPINE FUMARATE) [Concomitant]

REACTIONS (1)
  - BLEPHAROSPASM [None]
